FAERS Safety Report 10258396 (Version 1)
Quarter: 2014Q2

REPORT INFORMATION
  Report Type: Spontaneous
  Country: US (occurrence: None)
  Receive Date: 20140623
  Receipt Date: 20140623
  Transmission Date: 20141212
  Serious: Yes (Hospitalization)
  Sender: FDA-Public Use
  Company Number: US-H14001-14-00087

PATIENT
  Age: 4 Month
  Sex: Male

DRUGS (1)
  1. PHENOBARBITAL [Suspect]
     Indication: PRODUCT USED FOR UNKNOWN INDICATION

REACTIONS (13)
  - Toxicity to various agents [None]
  - Munchausen^s syndrome [None]
  - Intentional overdose [None]
  - Altered state of consciousness [None]
  - Hypotension [None]
  - Hypothermia [None]
  - Somnolence [None]
  - Hypotonia [None]
  - Pupillary reflex impaired [None]
  - Tachycardia [None]
  - No therapeutic response [None]
  - Respiratory depression [None]
  - Lethargy [None]
